FAERS Safety Report 8487988-7 (Version None)
Quarter: 2012Q3

REPORT INFORMATION
  Report Type: 
  Country: None (occurrence: None)
  Receive Date: 20120705
  Receipt Date: 20120629
  Transmission Date: 20120928
  Serious: Yes (Hospitalization)
  Sender: FDA-Public Use
  Company Number: PHHY2012SG030126

PATIENT
  Sex: Male

DRUGS (3)
  1. IBUPROFEN [Concomitant]
     Dosage: 400 MG
  2. IMATINIB MESYLATE [Suspect]
     Indication: CHRONIC MYELOID LEUKAEMIA
     Dosage: 400 MG, DAILY
     Dates: start: 20110622
  3. FAMOTIDINE [Concomitant]
     Dosage: 20 MG, BID

REACTIONS (3)
  - FOOD POISONING [None]
  - THERAPEUTIC RESPONSE DECREASED [None]
  - GASTROENTERITIS VIRAL [None]
